FAERS Safety Report 10074377 (Version 3)
Quarter: 2014Q2

REPORT INFORMATION
  Report Type: Report from Study
  Country: BR (occurrence: BR)
  Receive Date: 20140411
  Receipt Date: 20140605
  Transmission Date: 20141212
  Serious: Yes (Other)
  Sender: FDA-Public Use
  Company Number: BR-ABBVIE-14P-020-1221731-00

PATIENT
  Age: 30 Year
  Sex: Female
  Weight: 60 kg

DRUGS (5)
  1. HUMIRA [Suspect]
     Indication: RHEUMATOID ARTHRITIS
     Route: 058
     Dates: start: 20140130, end: 201403
  2. HUMIRA [Suspect]
     Route: 058
     Dates: start: 20140401, end: 20140509
  3. SELENE [Concomitant]
     Indication: CONTRACEPTION
     Route: 048
  4. DICLOFENAC [Concomitant]
     Indication: RHEUMATOID ARTHRITIS
     Route: 048
     Dates: start: 2002
  5. METHOTREXATE [Concomitant]
     Indication: RHEUMATOID ARTHRITIS
     Route: 048
     Dates: start: 20140101

REACTIONS (10)
  - Eye disorder [Recovered/Resolved]
  - Rash generalised [Recovered/Resolved]
  - Injection site dermatitis [Not Recovered/Not Resolved]
  - Injection site hypersensitivity [Recovering/Resolving]
  - Injection site oedema [Not Recovered/Not Resolved]
  - Injection site erythema [Not Recovered/Not Resolved]
  - Injection site swelling [Not Recovered/Not Resolved]
  - Feeling abnormal [Unknown]
  - Joint stiffness [Unknown]
  - Arthritis [Unknown]
